FAERS Safety Report 17517632 (Version 1)
Quarter: 2020Q1

REPORT INFORMATION
  Report Type: Spontaneous
  Country: US (occurrence: US)
  Receive Date: 20200309
  Receipt Date: 20200309
  Transmission Date: 20200409
  Serious: Yes (Hospitalization)
  Sender: FDA-Public Use
  Company Number: None

PATIENT
  Age: 82 Year
  Sex: Female

DRUGS (5)
  1. PROLIA [Suspect]
     Active Substance: DENOSUMAB
     Indication: SENILE OSTEOPOROSIS
     Dosage: ?          OTHER FREQUENCY:Q 6 MONTHS;?
     Route: 058
     Dates: start: 20180807
  2. LUMIGAN [Concomitant]
     Active Substance: BIMATOPROST
  3. RANITIDINE. [Concomitant]
     Active Substance: RANITIDINE
  4. CALCIUM [Concomitant]
     Active Substance: CALCIUM
  5. LOVASTATIN. [Concomitant]
     Active Substance: LOVASTATIN

REACTIONS (3)
  - Hospitalisation [None]
  - Surgery [None]
  - Hypertension [None]
